FAERS Safety Report 8903081 (Version 3)
Quarter: 2013Q2

REPORT INFORMATION
  Report Type: Spontaneous
  Country: US (occurrence: US)
  Receive Date: 20121113
  Receipt Date: 20130503
  Transmission Date: 20140414
  Serious: No
  Sender: FDA-Public Use
  Company Number: US-ASTRAZENECA-2012SE81760

PATIENT
  Age: 49 Year
  Sex: Female

DRUGS (1)
  1. CRESTOR [Suspect]
     Route: 048

REACTIONS (7)
  - Arthritis [Unknown]
  - Intervertebral disc protrusion [Unknown]
  - Malaise [Unknown]
  - Hypoaesthesia [Unknown]
  - Sinusitis [Unknown]
  - Asthma [Unknown]
  - Type 2 diabetes mellitus [Unknown]
